FAERS Safety Report 7437261-0 (Version None)
Quarter: 2011Q2

REPORT INFORMATION
  Report Type: 
  Country: None (occurrence: None)
  Receive Date: 20110426
  Receipt Date: 20110418
  Transmission Date: 20111010
  Serious: Yes (Hospitalization)
  Sender: FDA-Public Use
  Company Number: GB-BRISTOL-MYERS SQUIBB COMPANY-15674518

PATIENT
  Age: 78 Year
  Sex: Male

DRUGS (4)
  1. VENLAFAXINE HCL [Concomitant]
     Indication: DEPRESSION
     Route: 048
  2. PROPRANOLOL HYDROCHLORIDE [Concomitant]
     Indication: HYPERTENSION
     Route: 048
     Dates: start: 20020205
  3. SPRYCEL [Suspect]
     Indication: CHRONIC MYELOID LEUKAEMIA
     Route: 048
     Dates: start: 20090814, end: 20110413
  4. DIAZEPAM [Concomitant]
     Indication: ANXIETY
     Route: 048
     Dates: start: 20010920

REACTIONS (4)
  - DIARRHOEA [None]
  - DEHYDRATION [None]
  - PLEURAL EFFUSION [None]
  - PERICARDIAL EFFUSION [None]
